FAERS Safety Report 10872328 (Version 1)
Quarter: 2015Q1

REPORT INFORMATION
  Report Type: Spontaneous
  Country: GB (occurrence: GB)
  Receive Date: 20150226
  Receipt Date: 20150226
  Transmission Date: 20150721
  Serious: Yes (Other)
  Sender: FDA-Public Use
  Company Number: GB-TEVA-542873ISR

PATIENT
  Sex: Male

DRUGS (1)
  1. PREDNISOLONE. [Suspect]
     Active Substance: PREDNISOLONE
     Route: 065
     Dates: start: 201410, end: 201501

REACTIONS (7)
  - Osteoporosis [Unknown]
  - Groin pain [Not Recovered/Not Resolved]
  - Gait disturbance [Unknown]
  - Therapy change [Unknown]
  - Muscle atrophy [Not Recovered/Not Resolved]
  - Hip arthroplasty [Unknown]
  - Pain in extremity [Not Recovered/Not Resolved]

NARRATIVE: CASE EVENT DATE: 201410
